FAERS Safety Report 4955611-1 (Version None)
Quarter: 2006Q1

REPORT INFORMATION
  Report Type: 
  Country: None (occurrence: None)
  Receive Date: 20060328
  Receipt Date: 20060317
  Transmission Date: 20060701
  Serious: Yes (Hospitalization)
  Sender: FDA-Public Use
  Company Number: AU-MERCK-0603AUS00129

PATIENT
  Age: 6 Year
  Sex: Male

DRUGS (2)
  1. SINGULAIR [Suspect]
     Route: 065
     Dates: start: 20050301
  2. ALBUTEROL [Concomitant]
     Route: 065

REACTIONS (2)
  - ASTHMA [None]
  - WEIGHT INCREASED [None]
